FAERS Safety Report 18433582 (Version 1)
Quarter: 2020Q4

REPORT INFORMATION
  Report Type: Spontaneous
  Country: US (occurrence: US)
  Receive Date: 20201028
  Receipt Date: 20201028
  Transmission Date: 20210114
  Serious: Yes (Other)
  Sender: FDA-Public Use
  Company Number: US-SA-2020SA299075

PATIENT

DRUGS (22)
  1. MAGNESIUM OXIDE. [Concomitant]
     Active Substance: MAGNESIUM OXIDE
     Dosage: UNK
     Dates: start: 20070101
  2. ZEMPLAR [Concomitant]
     Active Substance: PARICALCITOL
     Dosage: UNK
     Dates: start: 20070101
  3. ZEMPLAR [Concomitant]
     Active Substance: PARICALCITOL
     Dosage: UNK
     Dates: start: 20100101
  4. CRESTOR [Concomitant]
     Active Substance: ROSUVASTATIN CALCIUM
     Dosage: UNK
     Dates: start: 20070101
  5. DECADRON [Concomitant]
     Active Substance: DEXAMETHASONE
     Dosage: UNK
     Dates: start: 20070101
  6. HERCEPTIN [Concomitant]
     Active Substance: TRASTUZUMAB
     Indication: BREAST CANCER FEMALE
  7. EPIRUBICIN [Concomitant]
     Active Substance: EPIRUBICIN
     Indication: BREAST CANCER FEMALE
  8. CYTOXAN [Concomitant]
     Active Substance: CYCLOPHOSPHAMIDE
     Indication: BREAST CANCER FEMALE
  9. AMLODIPINE [Concomitant]
     Active Substance: AMLODIPINE BESYLATE
     Dosage: UNK
     Dates: start: 20070101
  10. NOVOLOG [Concomitant]
     Active Substance: INSULIN ASPART
  11. PERTUZUMAB. [Concomitant]
     Active Substance: PERTUZUMAB
     Indication: BREAST CANCER FEMALE
  12. TAXOTERE [Suspect]
     Active Substance: DOCETAXEL
     Dosage: 122 MG, Q3W
     Dates: start: 20140305, end: 20140305
  13. INSULIN GLARGINE [Concomitant]
     Active Substance: INSULIN GLARGINE
     Dosage: 20 UNIT PM
     Dates: start: 20070101
  14. COLACE [Concomitant]
     Active Substance: DOCUSATE SODIUM
  15. PERJETA [Concomitant]
     Active Substance: PERTUZUMAB
  16. LISINOPRIL. [Concomitant]
     Active Substance: LISINOPRIL
     Dosage: UNK
     Dates: start: 20070101
  17. NEOSAR [Concomitant]
     Active Substance: CYCLOPHOSPHAMIDE
     Indication: BREAST CANCER FEMALE
  18. 5-FLUOROURACIL [FLUOROURACIL] [Concomitant]
     Active Substance: FLUOROURACIL
     Indication: BREAST CANCER FEMALE
  19. HECTOROL [Concomitant]
     Active Substance: DOXERCALCIFEROL
     Dosage: UNK UNK, QD
     Dates: start: 20100101
  20. TAXOTERE [Suspect]
     Active Substance: DOCETAXEL
     Indication: BREAST CANCER FEMALE
     Dosage: 122 MG, Q3W
     Dates: start: 20140107, end: 20140107
  21. PROGRAF [Concomitant]
     Active Substance: TACROLIMUS
     Dosage: 3 DF, Q12H
     Dates: start: 20100101
  22. ELLENCE [Concomitant]
     Active Substance: EPIRUBICIN HYDROCHLORIDE
     Indication: BREAST CANCER FEMALE

REACTIONS (2)
  - Psychological trauma [Unknown]
  - Alopecia [Recovering/Resolving]

NARRATIVE: CASE EVENT DATE: 201401
